FAERS Safety Report 16012238 (Version 1)
Quarter: 2019Q1

REPORT INFORMATION
  Report Type: Spontaneous
  Country: US (occurrence: US)
  Receive Date: 20190227
  Receipt Date: 20190227
  Transmission Date: 20190418
  Serious: No
  Sender: FDA-Public Use
  Company Number: US-TEVA-2019-US-1006902

PATIENT
  Sex: Female

DRUGS (1)
  1. LORAZEPAM TABLETS [Suspect]
     Active Substance: LORAZEPAM
     Route: 065
     Dates: start: 20190114

REACTIONS (2)
  - Hypoglycaemia [Unknown]
  - Therapy change [Unknown]

NARRATIVE: CASE EVENT DATE: 20190114
